FAERS Safety Report 25983464 (Version 1)
Quarter: 2025Q4

REPORT INFORMATION
  Report Type: Spontaneous
  Country: EU (occurrence: EU)
  Receive Date: 20251031
  Receipt Date: 20251031
  Transmission Date: 20260118
  Serious: Yes (Other)
  Sender: RANBAXY
  Company Number: EU-SUN PHARMACEUTICALS INDUSTRIES LTD.-2025RR-534233

PATIENT
  Age: 72 Year
  Sex: Female

DRUGS (5)
  1. OLANZAPINE [Interacting]
     Active Substance: OLANZAPINE
     Indication: Bipolar disorder
     Dosage: 7.5 MILLIGRAM, UNK
     Route: 048
     Dates: end: 20250624
  2. CYAMEMAZINE [Interacting]
     Active Substance: CYAMEMAZINE
     Indication: Bipolar disorder
     Dosage: 20 GTT DROPS, TID, DOSE INCREASE IN 04/2025
     Route: 048
     Dates: start: 202504, end: 20250616
  3. MIRTAZAPINE [Interacting]
     Active Substance: MIRTAZAPINE
     Indication: Bipolar disorder
     Dosage: 30 MILLIGRAM, UNK
     Route: 048
     Dates: end: 20250616
  4. OXAZEPAM [Interacting]
     Active Substance: OXAZEPAM
     Indication: Bipolar disorder
     Dosage: 10 MILLIGRAM, Q4H
     Route: 048
  5. GABAPENTIN [Interacting]
     Active Substance: GABAPENTIN
     Indication: Bipolar disorder
     Dosage: 300 MILLIGRAM, TID
     Route: 048

REACTIONS (2)
  - Urinary retention [Recovering/Resolving]
  - Disorientation [Recovering/Resolving]

NARRATIVE: CASE EVENT DATE: 20250616
